FAERS Safety Report 14790368 (Version 2)
Quarter: 2018Q2

REPORT INFORMATION
  Report Type: Spontaneous
  Country: US (occurrence: US)
  Receive Date: 20180423
  Receipt Date: 20180504
  Transmission Date: 20180711
  Serious: No
  Sender: FDA-Public Use
  Company Number: US-MYLANLABS-2018M1026797

PATIENT
  Sex: Female
  Weight: 86 kg

DRUGS (2)
  1. EPIPEN [Suspect]
     Active Substance: EPINEPHRINE
     Indication: ALLERGY TO ARTHROPOD STING
     Dosage: 1 UNK, UNK
     Route: 065
  2. EPIPEN [Suspect]
     Active Substance: EPINEPHRINE
     Dosage: UNK
     Route: 065

REACTIONS (4)
  - Swelling [Recovered/Resolved]
  - Pruritus [Recovered/Resolved]
  - Device failure [Unknown]
  - Drug ineffective [Unknown]
